FAERS Safety Report 23780325 (Version 3)
Quarter: 2024Q3

REPORT INFORMATION
  Report Type: Spontaneous
  Country: US (occurrence: US)
  Receive Date: 20240424
  Receipt Date: 20240924
  Transmission Date: 20241017
  Serious: No
  Sender: NOVARTIS
  Company Number: US-002147023-NVSC2024US084802

PATIENT
  Sex: Female
  Weight: 62 kg

DRUGS (1)
  1. FABHALTA [Suspect]
     Active Substance: IPTACOPAN HYDROCHLORIDE
     Indication: Paroxysmal nocturnal haemoglobinuria
     Dosage: 200 MG, BID
     Route: 048
     Dates: start: 20240404

REACTIONS (4)
  - Nasopharyngitis [Recovered/Resolved]
  - Anxiety [Recovering/Resolving]
  - Blood cholesterol increased [Recovering/Resolving]
  - Left ventricular hypertrophy [Unknown]
